FAERS Safety Report 5814847-8 (Version None)
Quarter: 2008Q3

REPORT INFORMATION
  Report Type: 
  Country: None (occurrence: None)
  Receive Date: 20080718
  Receipt Date: 20080717
  Transmission Date: 20090109
  Serious: No
  Sender: FDA-Public Use
  Company Number: GB-EISAI MEDICAL RESEARCH-E2020-03101-SPO-GB

PATIENT
  Age: 59 Year
  Sex: Female

DRUGS (4)
  1. ARICEPT [Suspect]
     Indication: DEMENTIA ALZHEIMER'S TYPE
     Route: 048
     Dates: start: 20030101, end: 20061201
  2. ARICEPT [Suspect]
     Route: 048
     Dates: start: 20070101
  3. MEMANTINE HCL [Concomitant]
     Indication: DEMENTIA ALZHEIMER'S TYPE
     Dates: start: 20070101
  4. VALPROATE SODIUM [Concomitant]
     Dates: start: 20070101

REACTIONS (2)
  - PARTIAL SEIZURES [None]
  - WITHDRAWAL SYNDROME [None]
